FAERS Safety Report 6077901-4 (Version None)
Quarter: 2009Q1

REPORT INFORMATION
  Report Type: 
  Country: None (occurrence: None)
  Receive Date: 20090213
  Receipt Date: 20090210
  Transmission Date: 20090719
  Serious: Yes (Hospitalization)
  Sender: FDA-Public Use
  Company Number: JP-EISAI MEDICAL RESEARCH-E2020-04073-SPO-JP

PATIENT
  Age: 73 Year
  Sex: Male

DRUGS (3)
  1. ARICEPT [Suspect]
     Indication: DEMENTIA ALZHEIMER'S TYPE
     Route: 048
     Dates: start: 20081229, end: 20090104
  2. ARICEPT [Suspect]
     Route: 048
     Dates: start: 20090105, end: 20090106
  3. ARICEPT [Suspect]
     Route: 048
     Dates: start: 20090107, end: 20090113

REACTIONS (4)
  - BLOOD PRESSURE DECREASED [None]
  - BUNDLE BRANCH BLOCK [None]
  - DEPRESSED LEVEL OF CONSCIOUSNESS [None]
  - VENTRICULAR EXTRASYSTOLES [None]
